FAERS Safety Report 8071425-0 (Version None)
Quarter: 2012Q1

REPORT INFORMATION
  Report Type: 
  Country: None (occurrence: None)
  Receive Date: 20120125
  Receipt Date: 20120117
  Transmission Date: 20120608
  Serious: Yes (Hospitalization)
  Sender: FDA-Public Use
  Company Number: US-ELI_LILLY_AND_COMPANY-US201201006041

PATIENT
  Age: 42 Year
  Sex: Female

DRUGS (12)
  1. HUMALOG [Suspect]
     Dosage: 18 U, EACH MORNING
  2. HUMULIN N [Suspect]
     Indication: DIABETES MELLITUS
     Dosage: 14 U, EACH MORNING
     Dates: start: 20110901
  3. APIDRA [Concomitant]
     Dosage: 8 U, EACH EVENING
  4. HUMULIN N [Suspect]
     Dosage: 18 U, EACH MORNING
  5. HUMULIN N [Suspect]
     Dosage: 18 U, EACH MORNING
  6. HUMALOG [Suspect]
     Dosage: 14 U, EACH MORNING
     Dates: start: 20110901
  7. HUMALOG [Suspect]
     Dosage: 18 U, EACH MORNING
  8. HUMULIN N [Suspect]
     Dosage: 14 U, EACH MORNING
     Dates: start: 20110901
  9. HUMALOG [Suspect]
     Indication: DIABETES MELLITUS
     Dosage: 14 U, EACH MORNING
     Dates: start: 20110901
  10. PRENATAL [Concomitant]
     Dosage: UNK
  11. LEVEMIR [Concomitant]
     Dosage: UNK
  12. ORAL ANTIDIABETICS [Concomitant]

REACTIONS (8)
  - MALAISE [None]
  - BLOOD GLUCOSE INCREASED [None]
  - DRUG INEFFECTIVE [None]
  - SKIN EXFOLIATION [None]
  - INJECTION SITE URTICARIA [None]
  - MATERNAL EXPOSURE DURING PREGNANCY [None]
  - BLOOD GLUCOSE ABNORMAL [None]
  - PRURITUS GENERALISED [None]
